FAERS Safety Report 6008052-2 (Version None)
Quarter: 2008Q4

REPORT INFORMATION
  Report Type: 
  Country: None (occurrence: None)
  Receive Date: 20081217
  Receipt Date: 20080815
  Transmission Date: 20090506
  Serious: Yes (Hospitalization)
  Sender: FDA-Public Use
  Company Number: US-ASTRAZENECA-2008UW16253

PATIENT
  Age: 35 Year
  Sex: Male

DRUGS (4)
  1. CRESTOR [Suspect]
     Indication: BLOOD CHOLESTEROL INCREASED
     Dosage: 5 MG
     Route: 048
  2. TRAMADOL HCL [Concomitant]
  3. PROTONIX [Concomitant]
  4. FISH OIL [Concomitant]

REACTIONS (1)
  - RHABDOMYOLYSIS [None]
